FAERS Safety Report 23033688 (Version 2)
Quarter: 2023Q4

REPORT INFORMATION
  Report Type: Spontaneous
  Country: BE (occurrence: BE)
  Receive Date: 20231005
  Receipt Date: 20231018
  Transmission Date: 20240110
  Serious: Yes (Death, Hospitalization)
  Sender: FDA-Public Use
  Company Number: BE-TEVA-2023-BE-2931603

PATIENT
  Age: 59 Year
  Sex: Male

DRUGS (6)
  1. IBUPROFEN [Suspect]
     Active Substance: IBUPROFEN
     Indication: Product used for unknown indication
     Route: 065
  2. COLCHICINE [Concomitant]
     Active Substance: COLCHICINE
     Indication: Product used for unknown indication
     Route: 065
  3. INDACATEROL [Concomitant]
     Active Substance: INDACATEROL
     Indication: Chronic obstructive pulmonary disease
     Route: 065
  4. HYDROXYCHLOROQUINE SULFATE [Concomitant]
     Active Substance: HYDROXYCHLOROQUINE SULFATE
     Indication: Systemic scleroderma
     Route: 065
  5. PANTOPRAZOLE [Concomitant]
     Active Substance: PANTOPRAZOLE
     Indication: Gastric ulcer
     Route: 065
  6. CAPTOPRIL [Concomitant]
     Active Substance: CAPTOPRIL
     Indication: Product used for unknown indication
     Route: 065

REACTIONS (6)
  - Scleroderma renal crisis [Fatal]
  - Microangiopathic haemolytic anaemia [Fatal]
  - Renal failure [Fatal]
  - Respiratory distress [Fatal]
  - Hypoxia [Fatal]
  - Multiple organ dysfunction syndrome [Fatal]
